FAERS Safety Report 5863489-7 (Version None)
Quarter: 2008Q3

REPORT INFORMATION
  Report Type: 
  Country: None (occurrence: None)
  Receive Date: 20080828
  Receipt Date: 20080825
  Transmission Date: 20090109
  Serious: Yes (Death)
  Sender: FDA-Public Use
  Company Number: CH-PFIZER INC-2008070737

PATIENT
  Age: 67 Year
  Sex: Male
  Weight: 98 kg

DRUGS (13)
  1. SORTIS [Suspect]
     Indication: ACUTE MYOCARDIAL INFARCTION
     Route: 048
     Dates: start: 20080622, end: 20080705
  2. KLACID [Suspect]
     Route: 042
     Dates: start: 20080622, end: 20080627
  3. TAVANIC [Suspect]
     Indication: PNEUMONIA
     Route: 042
     Dates: start: 20080701, end: 20080705
  4. CEDUR [Concomitant]
     Route: 048
  5. ADALAT [Concomitant]
     Route: 048
  6. ASPIRIN [Concomitant]
     Route: 048
  7. COVERSUM [Concomitant]
     Route: 048
  8. LASIX [Concomitant]
     Route: 048
  9. LORASIFAR [Concomitant]
     Route: 048
  10. VOLTAREN [Concomitant]
     Route: 048
  11. TRAMADOL HYDROCHLORIDE AND ACETAMINOPHEN [Concomitant]
     Route: 048
  12. SOLU-MEDROL [Concomitant]
     Route: 042
  13. MERONEM [Concomitant]
     Route: 042
     Dates: start: 20080628, end: 20080717

REACTIONS (1)
  - BLOOD CREATINE PHOSPHOKINASE INCREASED [None]
